FAERS Safety Report 4603146-8 (Version None)
Quarter: 2005Q1

REPORT INFORMATION
  Report Type: 
  Country: None (occurrence: None)
  Receive Date: 20050307
  Receipt Date: 20050224
  Transmission Date: 20050727
  Serious: Yes (Hospitalization)
  Sender: FDA-Public Use
  Company Number: GBWYE460425FEB05

PATIENT
  Sex: Female

DRUGS (1)
  1. GEMTUZUMAB OZOGAMICIN [Suspect]
     Dates: start: 20050223

REACTIONS (1)
  - HYPOTENSION [None]
